APPROVED DRUG PRODUCT: ABSTRAL
Active Ingredient: FENTANYL CITRATE
Strength: EQ 0.8MG BASE **Federal Register determination that product was not discontinued or withdrawn for safety or effectiveness reasons**
Dosage Form/Route: TABLET;SUBLINGUAL
Application: N022510 | Product #006
Applicant: SENTYNL THERAPEUTICS INC
Approved: Jan 7, 2011 | RLD: Yes | RS: No | Type: DISCN